FAERS Safety Report 7504043-0 (Version None)
Quarter: 2011Q2

REPORT INFORMATION
  Report Type: 
  Country: None (occurrence: None)
  Receive Date: 20110525
  Receipt Date: 20110511
  Transmission Date: 20111010
  Serious: Yes (Other)
  Sender: FDA-Public Use
  Company Number: PHHY2011US12105

PATIENT
  Sex: Female

DRUGS (28)
  1. MELOXICAM [Suspect]
     Indication: PAIN
     Dosage: UNK
  2. RESTASIS [Suspect]
     Dosage: UNK
  3. GENTEAL [Suspect]
     Indication: DRY EYE
     Dosage: UNK, 5 TIMES DAILY
  4. GENTEAL [Suspect]
     Indication: EYE IRRITATION
  5. BLINK TEARS [Suspect]
     Indication: CORNEAL DISORDER
  6. SYSTANE [Suspect]
     Indication: CORNEAL DISORDER
  7. LOTAMAX [Suspect]
     Indication: DRY EYE
     Dosage: UNK
  8. BIOTEAR [Concomitant]
     Dosage: UNK
  9. REFRESH OPTIV [Suspect]
     Indication: EYE IRRITATION
  10. BLINK TEARS [Suspect]
     Indication: EYE IRRITATION
  11. SYSTANE [Suspect]
  12. SYSTANE [Suspect]
  13. FISH OIL [Concomitant]
     Dosage: UNK
  14. SOMA [Suspect]
     Indication: PAIN
     Dosage: UNK
  15. THERA TEAR [Suspect]
     Indication: DRY EYE
     Dosage: UNK, TID
  16. THERA TEAR [Suspect]
     Indication: EYE IRRITATION
  17. SYSTANE [Suspect]
     Indication: DRY EYE
     Dosage: UNK
  18. LOTAMAX [Suspect]
     Indication: EYE IRRITATION
  19. LOTAMAX [Suspect]
     Indication: CORNEAL DISORDER
  20. REFRESH OPTIV [Suspect]
     Indication: CORNEAL DISORDER
  21. REFRESH PLUS [Suspect]
     Indication: DRY EYE
     Dosage: UNK
  22. THERA TEAR [Suspect]
     Indication: CORNEAL DISORDER
  23. REFRESH OPTIV [Suspect]
     Indication: DRY EYE
     Dosage: UNK, 5 TIMES DAILY
  24. REFRESH PLUS [Suspect]
     Indication: EYE IRRITATION
  25. SYSTANE [Suspect]
     Indication: EYE IRRITATION
  26. SYSTANE [Suspect]
  27. REFRESH PLUS [Suspect]
     Indication: CORNEAL DISORDER
  28. BLINK TEARS [Suspect]
     Indication: DRY EYE
     Dosage: UNK, TID

REACTIONS (7)
  - EYELID INJURY [None]
  - WEIGHT DECREASED [None]
  - CORNEAL EROSION [None]
  - CORNEAL DISORDER [None]
  - EYE SWELLING [None]
  - EYE IRRITATION [None]
  - DRY EYE [None]
